FAERS Safety Report 4924311-6 (Version None)
Quarter: 2006Q1

REPORT INFORMATION
  Report Type: 
  Country: None (occurrence: None)
  Receive Date: 20060227
  Receipt Date: 20060109
  Transmission Date: 20060701
  Serious: Yes (Hospitalization, Other)
  Sender: FDA-Public Use
  Company Number: US-GLAXOSMITHKLINE-A0588374A

PATIENT
  Age: 33 Year
  Sex: Female

DRUGS (4)
  1. WELLBUTRIN XL [Suspect]
     Indication: DEPRESSION
     Dosage: 450MG PER DAY
     Route: 048
     Dates: start: 20051207, end: 20060108
  2. ZOLOFT [Concomitant]
     Dosage: 50MG PER DAY
  3. ALLEGRA [Concomitant]
     Dosage: 180MG PER DAY
  4. ORTHO CYCLEN-28 [Concomitant]

REACTIONS (1)
  - GRAND MAL CONVULSION [None]
